FAERS Safety Report 25763659 (Version 1)
Quarter: 2025Q3

REPORT INFORMATION
  Report Type: Spontaneous
  Country: US (occurrence: US)
  Receive Date: 20250905
  Receipt Date: 20250905
  Transmission Date: 20251020
  Serious: No
  Sender: DOMPE FARMACEUTICI
  Company Number: US-FARMAPROD-202411-3918

PATIENT
  Sex: Female

DRUGS (12)
  1. OXERVATE [Suspect]
     Active Substance: CENEGERMIN-BKBJ
     Indication: Neurotrophic keratopathy
     Route: 047
     Dates: start: 20240812
  2. REFRESH CONTACTS DROPS [Concomitant]
  3. XIIDRA [Concomitant]
     Active Substance: LIFITEGRAST
  4. PROBIOTICS NOS [Concomitant]
     Active Substance: PROBIOTICS NOS
  5. PREBIOTIC FIBER [Concomitant]
  6. BERBERINE [Concomitant]
     Active Substance: BERBERINE
  7. VITAMIN D3 [Concomitant]
     Active Substance: CHOLECALCIFEROL
  8. FERROUS SULFATE [Concomitant]
     Active Substance: FERROUS SULFATE
  9. FIBER THERAPY (CALCIUM POLYCARBOPHIL) [Concomitant]
     Active Substance: CALCIUM POLYCARBOPHIL
  10. AZATHIOPRINE [Concomitant]
     Active Substance: AZATHIOPRINE
  11. CITALOPRAM HYDROBROMIDE [Concomitant]
     Active Substance: CITALOPRAM HYDROBROMIDE
  12. HYDROCHLOROTHIAZIDE\LOSARTAN [Concomitant]
     Active Substance: HYDROCHLOROTHIAZIDE\LOSARTAN

REACTIONS (2)
  - Product administration error [Unknown]
  - Off label use [Unknown]
